FAERS Safety Report 14988062 (Version 1)
Quarter: 2018Q2

REPORT INFORMATION
  Report Type: Spontaneous
  Country: US (occurrence: US)
  Receive Date: 20180519
  Receipt Date: 20180519
  Transmission Date: 20180711
  Serious: Yes (Other)
  Sender: FDA-Public Use
  Company Number: None

PATIENT

DRUGS (1)
  1. AQUAPHOR [Suspect]
     Active Substance: PETROLATUM
     Indication: LASER THERAPY
     Dosage: ?          QUANTITY:14 OUNCE(S);?
     Route: 061
     Dates: start: 20180424, end: 20180427

REACTIONS (2)
  - Scar [None]
  - Application site rash [None]

NARRATIVE: CASE EVENT DATE: 20180426
